FAERS Safety Report 20404920 (Version 1)
Quarter: 2022Q1

REPORT INFORMATION
  Report Type: Report from Study
  Country: DE (occurrence: DE)
  Receive Date: 20220131
  Receipt Date: 20220131
  Transmission Date: 20220424
  Serious: Yes (Other)
  Sender: FDA-Public Use
  Company Number: DE-ABBVIE-22K-062-4257018-00

PATIENT
  Age: 59 Year
  Sex: Female
  Weight: 58.5 kg

DRUGS (7)
  1. RINVOQ [Suspect]
     Active Substance: UPADACITINIB
     Indication: Psoriatic arthropathy
     Route: 048
     Dates: start: 20211005, end: 20211122
  2. METHOTREXATE SODIUM [Concomitant]
     Active Substance: METHOTREXATE SODIUM
     Indication: Product used for unknown indication
     Route: 058
     Dates: start: 20080417
  3. FOLIC ACID [Concomitant]
     Active Substance: FOLIC ACID
     Indication: Product used for unknown indication
     Route: 048
     Dates: start: 20080417
  4. NALOXONE HYDROCHLORIDE\TILIDINE HYDROCHLORIDE [Concomitant]
     Active Substance: NALOXONE HYDROCHLORIDE\TILIDINE HYDROCHLORIDE
     Indication: Product used for unknown indication
     Dosage: 100/8MG
     Route: 048
     Dates: start: 20090429
  5. TELMISARTAN [Concomitant]
     Active Substance: TELMISARTAN
     Indication: Product used for unknown indication
     Route: 048
     Dates: start: 20200406
  6. MOXONIDINE [Concomitant]
     Active Substance: MOXONIDINE
     Indication: Product used for unknown indication
     Route: 048
     Dates: start: 20200406
  7. ALDACTONE [Concomitant]
     Active Substance: SPIRONOLACTONE
     Indication: Product used for unknown indication
     Route: 048
     Dates: start: 20200406

REACTIONS (1)
  - Hepatitis toxic [Recovered/Resolved]

NARRATIVE: CASE EVENT DATE: 20211122
